FAERS Safety Report 8589968-X (Version None)
Quarter: 2012Q3

REPORT INFORMATION
  Report Type: 
  Country: None (occurrence: None)
  Receive Date: 20120813
  Receipt Date: 20120803
  Transmission Date: 20120928
  Serious: Yes (Hospitalization)
  Sender: FDA-Public Use
  Company Number: CA-B.I. PHARMACEUTICALS,INC./RIDGEFIELD-2012-EU-03967GD

PATIENT
  Sex: Male

DRUGS (8)
  1. TIOTROPIUM [Suspect]
     Indication: ASTHMA
  2. FORMOTEROL W/BUDESONIDE [Suspect]
     Indication: ASTHMA
     Dosage: 200 MCG BUDESONIDE/6 MCG FORMOTEROL 4 INHALATIONS
     Route: 055
  3. CICLESONIDE [Suspect]
     Indication: ASTHMA
     Dosage: 800 MCG
     Route: 055
  4. ZAFIRLUKAST [Suspect]
     Indication: ASTHMA
     Dosage: 40 MG
  5. BUDESONIDE [Suspect]
     Indication: ASTHMA
     Dosage: FORMULATION: LIQUID
     Route: 045
  6. IMMUNE GLOBULIN NOS [Suspect]
     Indication: ASTHMA
     Route: 042
  7. ALBUTEROL SULATE [Suspect]
     Indication: ASTHMA
  8. MOXIFLOXACIN [Suspect]
     Indication: ASTHMA
     Dosage: FORMULATION: LIQUID
     Route: 045

REACTIONS (2)
  - ASTHMA [None]
  - DRUG INEFFECTIVE [None]
